FAERS Safety Report 12443358 (Version 2)
Quarter: 2016Q3

REPORT INFORMATION
  Report Type: Spontaneous
  Country: US (occurrence: US)
  Receive Date: 20160607
  Receipt Date: 20160705
  Transmission Date: 20161109
  Serious: No
  Sender: FDA-Public Use
  Company Number: US-GLAXOSMITHKLINE-US2016072650

PATIENT
  Age: 54 Year
  Sex: Female
  Weight: 69.84 kg

DRUGS (2)
  1. NUCALA [Suspect]
     Active Substance: MEPOLIZUMAB
     Indication: ASTHMA
     Dosage: 100 MG, U
     Route: 058
     Dates: start: 201605
  2. ALBUTEROL. [Suspect]
     Active Substance: ALBUTEROL
     Indication: DYSPNOEA
     Dosage: 2 PUFF(S), EVERY TWO MINUTES

REACTIONS (6)
  - Inappropriate schedule of drug administration [Unknown]
  - Dyspnoea [Unknown]
  - Overdose [Unknown]
  - Asthma [Unknown]
  - Emergency care [Unknown]
  - Drug ineffective [Unknown]

NARRATIVE: CASE EVENT DATE: 201605
